FAERS Safety Report 8197038-8 (Version None)
Quarter: 2012Q1

REPORT INFORMATION
  Report Type: 
  Country: None (occurrence: None)
  Receive Date: 20120309
  Receipt Date: 20120228
  Transmission Date: 20120608
  Serious: Yes (Hospitalization, Other)
  Sender: FDA-Public Use
  Company Number: US-ELI_LILLY_AND_COMPANY-US201112005640

PATIENT
  Sex: Female

DRUGS (9)
  1. FORTEO [Suspect]
     Dosage: 20 UG, QD
     Route: 065
  2. PANTOPRAZOLE [Concomitant]
     Indication: ENDOSCOPY
  3. MOBIC [Concomitant]
  4. PROTONIX [Concomitant]
  5. FORTEO [Suspect]
     Indication: OSTEOPOROSIS
     Dosage: 20 UG, QD
     Route: 065
     Dates: start: 20101017
  6. FORTEO [Suspect]
     Dosage: 20 UG, QD
  7. CYMBALTA [Concomitant]
     Indication: DEPRESSION
     Dosage: 60 MG, QD
  8. DEXLANSOPRAZOLE [Concomitant]
     Indication: ENDOSCOPY
  9. PERCOCET [Concomitant]

REACTIONS (11)
  - DEVICE MISUSE [None]
  - HAEMATEMESIS [None]
  - GASTRIC PH DECREASED [None]
  - PAIN [None]
  - ANAEMIA [None]
  - COLON NEOPLASM [None]
  - BACK PAIN [None]
  - VOCAL CORD NEOPLASM [None]
  - ULCER HAEMORRHAGE [None]
  - MALAISE [None]
  - HAEMATOCHEZIA [None]
